FAERS Safety Report 6683317-X (Version None)
Quarter: 2010Q2

REPORT INFORMATION
  Report Type: 
  Country: None (occurrence: None)
  Receive Date: 20100415
  Receipt Date: 20100401
  Transmission Date: 20101027
  Serious: Yes (Other)
  Sender: FDA-Public Use
  Company Number: PHEH2010US01995

PATIENT
  Sex: Female
  Weight: 63.4 kg

DRUGS (121)
  1. RECLAST [Suspect]
     Dosage: UNSPECIFIED
     Dates: start: 20090701
  2. RECLAST [Suspect]
     Dosage: 5 MG
     Route: 042
     Dates: start: 20090930
  3. FENTANYL [Concomitant]
     Dosage: 50 UG, UNK
     Dates: start: 20090330
  4. PENTASA [Concomitant]
     Dosage: 250 MG, QID
     Dates: start: 20070507
  5. PENTASA [Concomitant]
     Dosage: 250 MG, QD
     Dates: start: 20070208
  6. BYSTOLIC [Concomitant]
     Dosage: 2.5 MG, QD
     Dates: start: 20090702
  7. IMURAN [Concomitant]
     Dosage: 50 MG, TGD
     Dates: start: 20070208
  8. IMURAN [Concomitant]
     Dosage: 50 MG, QID
     Dates: start: 20070507
  9. PREDNISONE [Concomitant]
     Dosage: 12 MG, UNK
     Dates: start: 20070208
  10. PREDNISONE [Concomitant]
     Dosage: 10 MG, UNK
     Dates: start: 20070208
  11. PREDNISONE [Concomitant]
     Dosage: 14 MG, UNK
     Dates: start: 20070208
  12. PREDNISONE [Concomitant]
     Dosage: 20 MG, UNK
     Dates: start: 20070208
  13. PREDNISONE [Concomitant]
     Dosage: 15 MG, UNK
     Dates: start: 20070208
  14. PREDNISONE [Concomitant]
     Dosage: 30 MG, UNK
     Dates: start: 20070208
  15. PREDNISONE [Concomitant]
     Dosage: 25 MG, UNK
     Dates: start: 20070208
  16. METHADOSE [Concomitant]
     Dosage: 10 MG, TID
  17. AMBIEN [Concomitant]
     Dosage: 5 MG, UNK
     Dates: start: 20070208
  18. AMBIEN [Concomitant]
     Dosage: 5 MG, UNK
     Dates: start: 20070507
  19. AMBIEN [Concomitant]
     Dosage: 5 MG, UNK
     Dates: start: 20080222
  20. AMBIEN [Concomitant]
     Dosage: 5 MG, UNK
     Dates: start: 20080522
  21. AMBIEN [Concomitant]
     Dosage: 5 MG, UNK
     Dates: start: 20081205
  22. AMBIEN [Concomitant]
     Dosage: 5 MG, UNK
     Dates: start: 20090330
  23. AMBIEN [Concomitant]
     Dosage: 5 MG, UNK
     Dates: start: 20090702
  24. LYRICA [Concomitant]
     Dosage: 100 MG, UNK
  25. NORCO [Concomitant]
     Dosage: 10/325
  26. IMITREX ^CERENEX^ [Concomitant]
     Dosage: UNK
     Dates: start: 20070208
  27. IMITREX ^CERENEX^ [Concomitant]
     Dosage: UNK
     Dates: start: 20070507
  28. IMITREX ^CERENEX^ [Concomitant]
     Dosage: UNK
     Dates: start: 20080122
  29. IMITREX ^CERENEX^ [Concomitant]
     Dosage: UNK
     Dates: start: 20081205
  30. IMITREX ^CERENEX^ [Concomitant]
     Dosage: UNK
     Dates: start: 20081222
  31. IMITREX ^CERENEX^ [Concomitant]
     Dosage: UNK
     Dates: start: 20090330
  32. IMITREX ^CERENEX^ [Concomitant]
     Dosage: UNK
     Dates: start: 20090702
  33. BENICAR [Concomitant]
     Dosage: 20/12.5
  34. REMICADE [Concomitant]
     Dosage: 5 MG, PER KG
     Dates: start: 20080208
  35. REMICADE [Concomitant]
     Dosage: 10 MG, PER KG
     Dates: start: 20080122
  36. COZAAR [Concomitant]
     Dosage: 50 MG, QD
     Dates: start: 20090330
  37. ACTONEL [Concomitant]
     Dosage: 35 MG, UNK
     Dates: start: 20070208
  38. ACTONEL [Concomitant]
     Dosage: 35 MG, UNK
     Dates: start: 20070507
  39. KLOR-CON [Concomitant]
     Dosage: 20 MEQ
     Dates: start: 20070208
  40. KLOR-CON [Concomitant]
     Dosage: 20 MEQ
     Dates: start: 20070507
  41. KLOR-CON [Concomitant]
     Dosage: 20 MEQ
     Dates: start: 20080122
  42. KLOR-CON [Concomitant]
     Dosage: 20 MEQ
     Dates: start: 20080522
  43. KLOR-CON [Concomitant]
     Dosage: 40 MEQ, BID
     Dates: start: 20081205
  44. KLOR-CON [Concomitant]
     Dosage: 40 MEQ, TID
     Dates: start: 20090330
  45. KLOR-CON [Concomitant]
     Dosage: 60 MEQ TID
     Dates: start: 20090702
  46. ASACOL [Concomitant]
     Dosage: 1200 MG, BID
     Dates: start: 20090330
  47. NASONEX [Concomitant]
     Dosage: UNK
     Dates: start: 20070208
  48. LIDODERM [Concomitant]
     Dosage: UNK
     Dates: start: 20070208
  49. LIDODERM [Concomitant]
     Dosage: UNK
     Dates: start: 20070507
  50. LIDODERM [Concomitant]
     Dosage: UNK
     Dates: start: 20080122
  51. LIDODERM [Concomitant]
     Dosage: UNK
     Dates: start: 20080522
  52. LIDODERM [Concomitant]
     Dosage: UNK
     Dates: start: 20081205
  53. LIDODERM [Concomitant]
     Dosage: UNK
     Dates: start: 20090330
  54. LIDODERM [Concomitant]
     Dosage: UNK
     Dates: start: 20090702
  55. ESTRATEST [Concomitant]
     Dosage: UNK
     Dates: start: 20070208
  56. ESTRATEST [Concomitant]
     Dosage: UNK
     Dates: start: 20070507
  57. ESTRATEST [Concomitant]
     Dosage: UNK
     Dates: start: 20080122
  58. ESTRATEST [Concomitant]
     Dosage: UNK
     Dates: start: 20080522
  59. ESTRATEST [Concomitant]
     Dosage: UNK
     Dates: start: 20081205
  60. ESTRATEST [Concomitant]
     Dosage: UNK
     Dates: start: 20090330
  61. ESTRATEST [Concomitant]
     Dosage: UNK
     Dates: start: 20090702
  62. ALBUTEROL [Concomitant]
     Dosage: UNK
  63. VAGIFEM [Concomitant]
     Dosage: 2 PER WEEK
     Dates: start: 20070208
  64. VAGIFEM [Concomitant]
     Dosage: 2 PER WEEK
     Dates: start: 20070507
  65. VAGIFEM [Concomitant]
     Dosage: 2 PER WEEK
     Dates: start: 20080122
  66. MULTIVITAMIN ^LAPPE^ [Concomitant]
     Dosage: UNK
     Dates: start: 20070208
  67. MULTIVITAMIN ^LAPPE^ [Concomitant]
     Dosage: UNK
     Dates: start: 20070507
  68. MULTIVITAMIN ^LAPPE^ [Concomitant]
     Dosage: UNK
     Dates: start: 20080122
  69. MULTIVITAMIN ^LAPPE^ [Concomitant]
     Dosage: UNK
     Dates: start: 20080122
  70. MULTIVITAMIN ^LAPPE^ [Concomitant]
     Dosage: UNK
     Dates: start: 20080522
  71. MULTIVITAMIN ^LAPPE^ [Concomitant]
     Dosage: UNK
     Dates: start: 20081205
  72. MULTIVITAMIN ^LAPPE^ [Concomitant]
     Dosage: UNK
     Dates: start: 20090330
  73. MULTIVITAMIN ^LAPPE^ [Concomitant]
     Dosage: UNK
     Dates: start: 20090702
  74. VITAMIN D [Concomitant]
     Dosage: UNK
     Dates: start: 20070208
  75. VITAMIN D [Concomitant]
     Dosage: UNK
     Dates: start: 20070507
  76. VITAMIN D [Concomitant]
     Dosage: UNK
     Dates: start: 20080122
  77. VITAMIN D [Concomitant]
     Dosage: UNK
     Dates: start: 20080522
  78. VITAMIN D [Concomitant]
     Dosage: UNK
     Dates: start: 20081205
  79. VITAMIN D [Concomitant]
     Dosage: UNK
     Dates: start: 20090330
  80. VITAMIN D [Concomitant]
     Dosage: UNK
     Dates: start: 20090702
  81. CALCIUM [Concomitant]
     Dosage: UNK
     Dates: start: 20070507
  82. CALCIUM [Concomitant]
     Dosage: UNK
     Dates: start: 20080122
  83. CALCIUM [Concomitant]
     Dosage: UNK
     Dates: start: 20080522
  84. CALCIUM [Concomitant]
     Dosage: UNK
     Dates: start: 20081205
  85. CALCIUM [Concomitant]
     Dosage: UNK
     Dates: start: 20090330
  86. CALCIUM [Concomitant]
     Dosage: UNK
     Dates: start: 20090702
  87. FOLIC ACID [Concomitant]
     Dosage: 1 MG, QD
     Dates: start: 20070507
  88. FOLIC ACID [Concomitant]
     Dosage: 1 MG, QD
     Dates: start: 20080122
  89. FOLIC ACID [Concomitant]
     Dosage: 1 MG, QD
     Dates: start: 20080522
  90. FOLIC ACID [Concomitant]
     Dosage: 1 MG, QD
     Dates: start: 20081205
  91. KADIAN ^KNOLL^ [Concomitant]
     Dosage: 30 MG, UNK
     Dates: start: 20070507
  92. KADIAN ^KNOLL^ [Concomitant]
     Dosage: 30 MG, UNK
     Dates: start: 20080122
  93. KADIAN ^KNOLL^ [Concomitant]
     Dosage: 30 MG, UNK
     Dates: start: 20080522
  94. KADIAN ^KNOLL^ [Concomitant]
     Dosage: 30 MG, UNK
     Dates: start: 20081205
  95. FOSAMAX [Concomitant]
     Dosage: 20 MG, PER WEEK
     Dates: start: 20080122
  96. FOSAMAX [Concomitant]
     Dosage: 20 MG, PER WEEK
     Dates: start: 20080522
  97. FOSAMAX [Concomitant]
     Dosage: 20 MG, PER WEEK
     Dates: start: 20081205
  98. FOSAMAX [Concomitant]
     Dosage: 20 MG, PER WEEK
     Dates: start: 20090330
  99. FOSAMAX [Concomitant]
     Dosage: 20 MG, PER WEEK
     Dates: start: 20090702
  100. METHOTREXAT [Concomitant]
     Dosage: 10 MG, UNK
     Dates: start: 20080122
  101. METHOTREXAT [Concomitant]
     Dosage: 10 MG, UNK
     Dates: start: 20080522
  102. METHOTREXAT [Concomitant]
     Dosage: 10 MG, UNK
     Dates: start: 20081205
  103. METHOTREXAT [Concomitant]
     Dosage: 10 MG, UNK
     Dates: start: 20090330
  104. METHOTREXAT [Concomitant]
     Dosage: 10 MG, UNK
     Dates: start: 20090702
  105. LASIX [Concomitant]
     Dosage: 20 MG, QD
     Dates: start: 20080522
  106. LASIX [Concomitant]
     Dosage: 20 MG, QD
     Dates: start: 20081205
  107. LASIX [Concomitant]
     Dosage: 20 MG, QD
     Dates: start: 20090330
  108. LASIX [Concomitant]
     Dosage: 20 MG, QD
     Dates: start: 20090702
  109. SENOKOT                                 /UNK/ [Concomitant]
     Dosage: UNK
     Dates: start: 20080522
  110. SENOKOT                                 /UNK/ [Concomitant]
     Dosage: UNK
     Dates: start: 20081205
  111. SENOKOT                                 /UNK/ [Concomitant]
     Dosage: UNK
     Dates: start: 20090330
  112. SENOKOT                                 /UNK/ [Concomitant]
     Dosage: UNK
     Dates: start: 20090702
  113. RESTASIS [Concomitant]
     Dosage: UNK
     Dates: start: 20081205
  114. RESTASIS [Concomitant]
     Dosage: UNK
     Dates: start: 20090330
  115. RESTASIS [Concomitant]
     Dosage: UNK
     Dates: start: 20090702
  116. PROTONIX [Concomitant]
     Dosage: 40 MG, UNK
     Dates: start: 20081205
  117. PROTONIX [Concomitant]
     Dosage: 40 MG, UNK
     Dates: start: 20090330
  118. PROTONIX [Concomitant]
     Dosage: 40 MG, UNK
     Dates: start: 20090702
  119. DIFLUCAN [Concomitant]
     Dosage: 100 MG, UNK
     Dates: start: 20081205
  120. DIFLUCAN [Concomitant]
     Dosage: 100 MG, UNK
     Dates: start: 20090330
  121. DIFLUCAN [Concomitant]
     Dosage: 100 MG, UNK
     Dates: start: 20090702

REACTIONS (3)
  - EXOSTOSIS [None]
  - HIP ARTHROPLASTY [None]
  - POSTOPERATIVE HETEROTOPIC CALCIFICATION [None]
